FAERS Safety Report 25956823 (Version 1)
Quarter: 2025Q4

REPORT INFORMATION
  Report Type: Report from Study
  Country: US (occurrence: US)
  Receive Date: 20251024
  Receipt Date: 20251024
  Transmission Date: 20260117
  Serious: Yes (Hospitalization)
  Sender: GILEAD
  Company Number: US-GILEAD-2025-0733502

PATIENT
  Sex: Female

DRUGS (15)
  1. AZTREONAM LYSINE [Suspect]
     Active Substance: AZTREONAM LYSINE
     Indication: Illness
     Dosage: INHALE 1 VIAL (75 MG) VIA ALTERA NEBULIZER 3 TIMES DAILY CYCLING 28 DAYS ON, 28 DAYS OFF
     Route: 055
  2. TOBRAMYCIN [Concomitant]
     Active Substance: TOBRAMYCIN
  3. BACTRIM [Concomitant]
     Active Substance: SULFAMETHOXAZOLE\TRIMETHOPRIM
     Dosage: UNK
  4. CLOBAZAM [Concomitant]
     Active Substance: CLOBAZAM
     Dosage: UNK
  5. PROPRANOLOL [Concomitant]
     Active Substance: PROPRANOLOL HYDROCHLORIDE
     Dosage: UNK
  6. ADVAIR HFA [Concomitant]
     Active Substance: FLUTICASONE PROPIONATE\SALMETEROL XINAFOATE
     Dosage: UNK
  7. NEXIUM [Concomitant]
     Active Substance: ESOMEPRAZOLE MAGNESIUM
     Dosage: UNK
  8. NITROFURANTOIN [Concomitant]
     Active Substance: NITROFURANTOIN
     Dosage: UNK
  9. CLONIDINE [Concomitant]
     Active Substance: CLONIDINE
  10. DIETARY SUPPLEMENT [Concomitant]
     Active Substance: DIETARY SUPPLEMENT
     Dosage: UNK
  11. PULMOZYME [Concomitant]
     Active Substance: DORNASE ALFA
     Dosage: UNK
  12. KEPPRA [Concomitant]
     Active Substance: LEVETIRACETAM
     Dosage: UNK
  13. NANOVM 1 TO 3 YEARS [Concomitant]
     Dosage: UNK
  14. RUFINAMIDE [Concomitant]
     Active Substance: RUFINAMIDE
     Dosage: UNK
  15. BACLOFEN [Concomitant]
     Active Substance: BACLOFEN
     Dosage: UNK

REACTIONS (1)
  - Respiratory tract infection [Unknown]
